FAERS Safety Report 7503445-6 (Version None)
Quarter: 2011Q2

REPORT INFORMATION
  Report Type: 
  Country: None (occurrence: None)
  Receive Date: 20110525
  Receipt Date: 20110517
  Transmission Date: 20111010
  Serious: Yes (Hospitalization)
  Sender: FDA-Public Use
  Company Number: FR-ROCHE-729469

PATIENT
  Sex: Female
  Weight: 52 kg

DRUGS (36)
  1. VALACYCLOVIR [Concomitant]
     Dosage: TEMPORARILY DISCONTINUED FROM 28 JUN TO 05 JULY 2010
     Route: 048
     Dates: start: 20100521, end: 20100628
  2. MAG 2 [Concomitant]
     Dosage: TDD: 2 DOSES
     Dates: start: 20100702
  3. BICARBONATE DE SODIUM [Concomitant]
     Route: 048
     Dates: start: 20100712
  4. CIPROFLOXACIN [Concomitant]
     Dates: start: 20100628, end: 20100718
  5. AMLODIPINE BESYLATE [Concomitant]
     Dosage: FREQUENCY REPORTED AS QD.
     Route: 048
     Dates: start: 20100517
  6. EPREX [Concomitant]
     Route: 058
     Dates: start: 20100803
  7. LEXOMIL [Concomitant]
     Route: 048
     Dates: start: 20100923
  8. NOVOMIX [Concomitant]
     Route: 058
     Dates: start: 20100811, end: 20100906
  9. MYCOPHENOLATE MOFETIL [Suspect]
     Dosage: ROUTE REPORTED AS PER OS.
     Route: 048
     Dates: start: 20100511
  10. AMLODIPINE BESYLATE [Concomitant]
     Route: 048
     Dates: start: 20100706
  11. DIFFU K [Concomitant]
     Dosage: TDD: 6 DOSES
     Route: 048
     Dates: start: 20100626
  12. PANTOPRAZOLE SODIUM [Concomitant]
     Route: 048
     Dates: start: 20100515
  13. INSULATARD [Concomitant]
     Dosage: TDD: 20+9 IU
     Dates: start: 20100703, end: 20100806
  14. NOVORAPID [Concomitant]
     Dosage: TDD: 8+8+8 IU
     Route: 058
     Dates: start: 20100628
  15. PROGRAF [Suspect]
     Route: 048
  16. VALACYCLOVIR [Concomitant]
     Route: 048
     Dates: start: 20100706
  17. PREDNISONE [Suspect]
     Dosage: LAST DOSE PRIOR TO SAE: 8 SEP 2010
     Route: 048
     Dates: start: 20100518
  18. PANTOPRAZOLE SODIUM [Concomitant]
     Dosage: REPORTED AS QD.
     Route: 048
     Dates: start: 20100512
  19. BICARBONATE DE SODIUM [Concomitant]
     Route: 048
     Dates: start: 20100702
  20. NOVORAPID [Concomitant]
     Route: 058
  21. DUPHALAC [Concomitant]
     Dates: start: 20110501
  22. DEBRIDAT [Concomitant]
     Dates: start: 20110404
  23. FORLAX [Concomitant]
     Route: 048
     Dates: start: 20101001
  24. CERTICAN [Suspect]
     Dosage: ROUTE REPORTED AS PER OS. LAST DOSE PRIOR TO SAE 23 SEP 2010.
     Route: 048
     Dates: start: 20100516
  25. DIFFU K [Concomitant]
     Route: 048
     Dates: start: 20110503
  26. NOVORAPID [Concomitant]
     Route: 058
     Dates: start: 20100721, end: 20101001
  27. PIPERACILLIN AND TAZOBACTAM [Concomitant]
     Dates: start: 20100628, end: 20100719
  28. XYZAL [Concomitant]
     Route: 048
     Dates: start: 20100915, end: 20100929
  29. LANTUS [Concomitant]
     Dosage: REPORTED AS QD.
     Route: 058
     Dates: start: 20100907, end: 20101001
  30. LASIX [Concomitant]
     Dates: start: 20110409
  31. PREDNISONE [Suspect]
     Route: 048
     Dates: start: 20101002
  32. PRAVASTATIN SODIUM [Concomitant]
     Dosage: REPORTED AS QD.
     Route: 048
     Dates: start: 20100522
  33. PHOSPHONEUROS [Concomitant]
     Route: 048
     Dates: start: 20100525
  34. DIFFU K [Concomitant]
     Route: 048
     Dates: start: 20100628, end: 20100930
  35. FORLAX [Concomitant]
     Dosage: DRUG REPORTED AS PORLAX QD AS NEEDED.
     Route: 048
  36. ASPIRIN [Concomitant]
     Dates: start: 20110412

REACTIONS (3)
  - ESCHERICHIA SEPSIS [None]
  - KLEBSIELLA SEPSIS [None]
  - TRANSPLANT REJECTION [None]
